FAERS Safety Report 6038032-2 (Version None)
Quarter: 2009Q1

REPORT INFORMATION
  Report Type: 
  Country: None (occurrence: None)
  Receive Date: 20090113
  Receipt Date: 20090113
  Transmission Date: 20090719
  Serious: No
  Sender: FDA-Public Use
  Company Number: None

PATIENT
  Sex: Female
  Weight: 58.9676 kg

DRUGS (2)
  1. FOSAMAX [Suspect]
     Indication: OSTEOPOROSIS
     Dosage: ONCE DAILY, MONTHLY O
     Route: 048
     Dates: start: 19990815, end: 20060530
  2. STYLE 410, COHESIVE GEL ALLERGEN [Suspect]
     Indication: BREAST RECONSTRUCTION
     Dates: start: 20010512, end: 20081231

REACTIONS (3)
  - FRACTURE [None]
  - IMPAIRED HEALING [None]
  - MYALGIA [None]
